FAERS Safety Report 8504722-2 (Version None)
Quarter: 2012Q3

REPORT INFORMATION
  Report Type: 
  Country: None (occurrence: None)
  Receive Date: 20120711
  Receipt Date: 20120321
  Transmission Date: 20120928
  Serious: Yes (Hospitalization)
  Sender: FDA-Public Use
  Company Number: JP-009507513-1207JPN000103

PATIENT

DRUGS (26)
  1. ZOLINZA CAPSULES 100MG [Suspect]
     Indication: MYCOSIS FUNGOIDES
     Route: 048
     Dates: start: 20120217, end: 20120221
  2. ITRACONAZOLE [Concomitant]
     Indication: PROPHYLAXIS
     Route: 048
     Dates: end: 20120324
  3. CANDESARTAN CILEXETIL [Concomitant]
     Indication: HYPERTENSION
     Route: 048
  4. MAXIPIME [Concomitant]
     Indication: PNEUMONIA
     Route: 042
     Dates: start: 20120320, end: 20120326
  5. ZOLINZA CAPSULES 100MG [Suspect]
     Route: 048
     Dates: start: 20120309, end: 20120413
  6. EPINASTINE HYDROCHLORIDE [Concomitant]
     Indication: MYCOSIS FUNGOIDES
     Route: 048
  7. [THERAPY UNSPECIFIED] [Concomitant]
     Indication: ILEUS
     Route: 048
     Dates: start: 20120320
  8. ZOSYN [Concomitant]
     Indication: PNEUMONIA
     Route: 042
     Dates: start: 20120307, end: 20120315
  9. OMEPRAZOLE [Concomitant]
     Indication: MYCOSIS FUNGOIDES
     Route: 042
     Dates: start: 20120327, end: 20120404
  10. ADONA [Concomitant]
     Indication: MYCOSIS FUNGOIDES
     Route: 051
     Dates: start: 20120322
  11. FUNGUARD [Concomitant]
     Indication: PROPHYLAXIS
     Route: 041
     Dates: start: 20120325, end: 20120328
  12. JANUVIA TABLETS 100MG [Concomitant]
     Route: 048
  13. SULFAMETHOXAZOLE AND TRIMETHOPRIM [Concomitant]
     Indication: PROPHYLAXIS
     Route: 048
  14. PLETAL [Concomitant]
     Indication: CEREBRAL INFARCTION
     Route: 048
  15. FIRSTCIN [Concomitant]
     Route: 042
     Dates: start: 20120327, end: 20120408
  16. PLETAL [Concomitant]
     Route: 048
     Dates: start: 20120320
  17. ALDACTONE [Concomitant]
     Indication: CARDIAC FAILURE
     Route: 048
     Dates: start: 20120323, end: 20120326
  18. FIRSTCIN [Concomitant]
     Indication: PNEUMONIA
     Route: 042
     Dates: start: 20120216, end: 20120226
  19. FIRSTCIN [Concomitant]
     Route: 042
     Dates: start: 20120327, end: 20120409
  20. MAXIPIME [Concomitant]
     Route: 042
     Dates: start: 20120409, end: 20120415
  21. VERAPAMIL HCL [Concomitant]
     Indication: ARRHYTHMIA
     Route: 048
     Dates: start: 20120224, end: 20120408
  22. SLOW-K [Concomitant]
     Indication: CARDIAC FAILURE
     Route: 048
     Dates: start: 20120221, end: 20120316
  23. MAXIPIME [Concomitant]
     Route: 042
     Dates: start: 20120320, end: 20120326
  24. OMEPRAZOLE [Concomitant]
     Indication: GASTROOESOPHAGEAL REFLUX DISEASE
     Route: 048
     Dates: end: 20120330
  25. FIRSTCIN [Concomitant]
     Route: 042
     Dates: start: 20120216, end: 20120226
  26. MAXIPIME [Concomitant]
     Route: 042
     Dates: end: 20120416

REACTIONS (3)
  - ARRHYTHMIA [None]
  - ILEUS [None]
  - DECREASED APPETITE [None]
